FAERS Safety Report 18349056 (Version 1)
Quarter: 2020Q4

REPORT INFORMATION
  Report Type: Spontaneous
  Country: US (occurrence: US)
  Receive Date: 20201005
  Receipt Date: 20201005
  Transmission Date: 20210114
  Serious: No
  Sender: FDA-Public Use
  Company Number: None

PATIENT
  Age: 82 Year
  Sex: Female
  Weight: 72.58 kg

DRUGS (7)
  1. KLONOPIN [Suspect]
     Active Substance: CLONAZEPAM
     Indication: ANXIETY
     Dates: start: 1995, end: 2015
  2. VIT D [Suspect]
     Active Substance: VITAMIN D NOS
  3. SIMVASTATIN. [Suspect]
     Active Substance: SIMVASTATIN
  4. NADOLOL. [Suspect]
     Active Substance: NADOLOL
  5. SYNTHROID [Suspect]
     Active Substance: LEVOTHYROXINE SODIUM
  6. ELIQUIS [Suspect]
     Active Substance: APIXABAN
  7. RYTHMOL [Suspect]
     Active Substance: PROPAFENONE HYDROCHLORIDE

REACTIONS (5)
  - Withdrawal syndrome [None]
  - Anxiety [None]
  - Fear [None]
  - Discomfort [None]
  - Dependence [None]
